FAERS Safety Report 4697246-4 (Version None)
Quarter: 2005Q2

REPORT INFORMATION
  Report Type: 
  Country: None (occurrence: None)
  Receive Date: 20050621
  Receipt Date: 20050621
  Transmission Date: 20051028
  Serious: Yes (Hospitalization)
  Sender: FDA-Public Use
  Company Number: None

PATIENT
  Sex: Female
  Weight: 101.8325 kg

DRUGS (11)
  1. GEODON [Suspect]
     Indication: BIPOLAR DISORDER
     Dosage: 280 MG PO QPM
     Route: 048
     Dates: start: 20050613
  2. DILTIAZEM [Concomitant]
  3. ALTACE [Concomitant]
  4. FUROSEMIDE [Concomitant]
  5. PREMARIN [Concomitant]
  6. LEXAPRO [Concomitant]
  7. XANAX XR [Concomitant]
  8. TRILEPTAL [Concomitant]
  9. BENADRYL [Concomitant]
  10. COZAAR [Concomitant]
  11. LUNESTA [Concomitant]

REACTIONS (4)
  - BLOOD SODIUM DECREASED [None]
  - CONDITION AGGRAVATED [None]
  - DEPRESSION [None]
  - SUICIDAL IDEATION [None]
